FAERS Safety Report 20704974 (Version 1)
Quarter: 2022Q2

REPORT INFORMATION
  Report Type: Spontaneous
  Country: US (occurrence: None)
  Receive Date: 20220413
  Receipt Date: 20220413
  Transmission Date: 20220720
  Serious: No
  Sender: FDA-Public Use
  Company Number: None

PATIENT
  Sex: Female

DRUGS (1)
  1. RINVOQ [Suspect]
     Active Substance: UPADACITINIB
     Indication: Rheumatoid arthritis
     Dosage: 15MG DAILY ORAL
     Route: 048
     Dates: start: 20220316

REACTIONS (2)
  - Headache [None]
  - Drug ineffective [None]

NARRATIVE: CASE EVENT DATE: 20220301
